FAERS Safety Report 5237984-8 (Version None)
Quarter: 2007Q1

REPORT INFORMATION
  Report Type: 
  Country: None (occurrence: None)
  Receive Date: 20070209
  Receipt Date: 20070205
  Transmission Date: 20070707
  Serious: Yes (Death)
  Sender: FDA-Public Use
  Company Number: 2006SP007484

PATIENT
  Age: 71 Year
  Sex: Female
  Weight: 75.2971 kg

DRUGS (1)
  1. TEMODAR [Suspect]
     Indication: MALIGNANT MELANOMA
     Dosage: 140 MG; QD; PO
     Route: 048
     Dates: start: 20060918, end: 20061030

REACTIONS (4)
  - METASTASES TO BONE [None]
  - METASTASES TO CENTRAL NERVOUS SYSTEM [None]
  - METASTASES TO LUNG [None]
  - NEOPLASM PROGRESSION [None]
